FAERS Safety Report 9113165 (Version 1)
Quarter: 2013Q1

REPORT INFORMATION
  Report Type: Spontaneous
  Country: US (occurrence: US)
  Receive Date: 20130211
  Receipt Date: 20130211
  Transmission Date: 20140127
  Serious: Yes (Hospitalization, Other)
  Sender: FDA-Public Use
  Company Number: US-ASTRAZENECA-2013SE07722

PATIENT
  Age: 66 Year
  Sex: Male
  Weight: 81.6 kg

DRUGS (5)
  1. SYMBICORT [Suspect]
     Indication: CHRONIC OBSTRUCTIVE PULMONARY DISEASE
     Dosage: 160/4.5 MCG, TWO PUFFS BID
     Route: 055
     Dates: start: 20120412
  2. PREDNISONE [Suspect]
     Route: 048
  3. ALBUTEROL [Concomitant]
     Indication: CHRONIC OBSTRUCTIVE PULMONARY DISEASE
     Route: 055
  4. SPIRIVA [Concomitant]
     Indication: CHRONIC OBSTRUCTIVE PULMONARY DISEASE
     Route: 055
  5. ABOUT 15 MEDICATIONS [Concomitant]
     Indication: DEPRESSION

REACTIONS (6)
  - Spinal cord neoplasm [Unknown]
  - Paraesthesia [Unknown]
  - Gait disturbance [Unknown]
  - Abdominal discomfort [Unknown]
  - Off label use [Unknown]
  - Drug ineffective [Unknown]
